FAERS Safety Report 7024318-1 (Version None)
Quarter: 2010Q3

REPORT INFORMATION
  Report Type: 
  Country: None (occurrence: None)
  Receive Date: 20100929
  Receipt Date: 20100915
  Transmission Date: 20110219
  Serious: Yes (Hospitalization)
  Sender: FDA-Public Use
  Company Number: 018858

PATIENT
  Sex: Female
  Weight: 75.7 kg

DRUGS (9)
  1. CIMZIA [Suspect]
     Indication: CROHN'S DISEASE
     Dosage: 400 MG 1X/4 WEEKS SUBCUTANEOUS
     Route: 058
     Dates: start: 20100806
  2. PREDNISONE [Concomitant]
  3. IRON [Concomitant]
  4. REMICADE [Concomitant]
  5. VITAMIN D3 [Concomitant]
  6. OMEPRAZOLE [Concomitant]
  7. ELMIRON [Concomitant]
  8. LISINOPRIL AND HYDROCHLOROTHIAZIDE [Concomitant]
  9. DESOGESTREL AND ETHINYL ESTRADIOL [Concomitant]

REACTIONS (11)
  - ASTHENIA [None]
  - CONDITION AGGRAVATED [None]
  - CROHN'S DISEASE [None]
  - DIARRHOEA [None]
  - DIARRHOEA HAEMORRHAGIC [None]
  - FATIGUE [None]
  - HYPERPYREXIA [None]
  - HYPOTENSION [None]
  - NAUSEA [None]
  - TACHYCARDIA [None]
  - VOMITING [None]
